FAERS Safety Report 9256945 (Version 2)
Quarter: 2013Q2

REPORT INFORMATION
  Report Type: Spontaneous
  Country: US (occurrence: None)
  Receive Date: 20130423
  Receipt Date: 20130521
  Transmission Date: 20140414
  Serious: Yes (Hospitalization, Other)
  Sender: FDA-Public Use
  Company Number: JPI-P-031283

PATIENT
  Age: 55 Year
  Sex: Male

DRUGS (7)
  1. XYREM [Suspect]
     Indication: INSOMNIA
     Dosage: (3 GM,2 IN 1 D)
     Route: 048
     Dates: start: 20090930
  2. ZALEPLON [Suspect]
  3. AMIODARONE [Suspect]
     Indication: ATRIAL FIBRILLATION
  4. HYDROMORPHONE/BUPIVACAINE [Concomitant]
  5. PREGABALIN [Concomitant]
  6. HYDROMORPHONE HCL [Concomitant]
  7. MODAFINIL [Concomitant]

REACTIONS (38)
  - Adverse event [None]
  - Myocardial infarction [None]
  - Lung infection [None]
  - Toxicity to various agents [None]
  - Pleurisy [None]
  - Tremor [None]
  - Ligament sprain [None]
  - Ligament sprain [None]
  - Intervertebral disc degeneration [None]
  - Bursa disorder [None]
  - Carpal tunnel syndrome [None]
  - Radiculitis lumbosacral [None]
  - Dysphonia [None]
  - Myositis [None]
  - Neuritis [None]
  - Radiculitis [None]
  - Abdominal pain [None]
  - Back pain [None]
  - Myalgia [None]
  - Sleep disorder [None]
  - Pain [None]
  - Urinary tract infection [None]
  - Diarrhoea [None]
  - Arthritis [None]
  - Contusion [None]
  - Fall [None]
  - Limb injury [None]
  - Fatigue [None]
  - Sinusitis [None]
  - Sepsis [None]
  - Cardiac failure congestive [None]
  - Respiratory failure [None]
  - Coma [None]
  - Atrial fibrillation [None]
  - Chest discomfort [None]
  - Chest pain [None]
  - Condition aggravated [None]
  - Fluid imbalance [None]
